FAERS Safety Report 16868993 (Version 1)
Quarter: 2019Q3

REPORT INFORMATION
  Report Type: Spontaneous
  Country: CA (occurrence: CA)
  Receive Date: 20190930
  Receipt Date: 20190930
  Transmission Date: 20191005
  Serious: Yes (Death)
  Sender: FDA-Public Use
  Company Number: CA-PFIZER INC-2019421279

PATIENT
  Age: 70 Year
  Sex: Female

DRUGS (2)
  1. IBRANCE [Suspect]
     Active Substance: PALBOCICLIB
     Indication: BREAST CANCER METASTATIC
     Dosage: 125 MG, 21 DAYS ON, 7 DAYS OFF
     Dates: start: 20181116
  2. FASLODEX [Concomitant]
     Active Substance: FULVESTRANT

REACTIONS (1)
  - Death [Fatal]

NARRATIVE: CASE EVENT DATE: 20190909
